FAERS Safety Report 7131349-X (Version None)
Quarter: 2010Q4

REPORT INFORMATION
  Report Type: 
  Country: None (occurrence: None)
  Receive Date: 20101124
  Receipt Date: 20101124
  Transmission Date: 20110411
  Serious: Yes (Death, Life-Threatening, Hospitalization)
  Sender: FDA-Public Use
  Company Number: None

PATIENT
  Sex: Male
  Weight: 108.8633 kg

DRUGS (1)
  1. ARICEPT [Suspect]
     Indication: DEMENTIA ALZHEIMER'S TYPE
     Dosage: 10 MG. ONCE PER DAY PO
     Route: 048
     Dates: start: 20090901, end: 20100109

REACTIONS (3)
  - ARTERIAL OCCLUSIVE DISEASE [None]
  - DIZZINESS [None]
  - LUNG DISORDER [None]
